FAERS Safety Report 24825702 (Version 1)
Quarter: 2025Q1

REPORT INFORMATION
  Report Type: Spontaneous
  Country: CN (occurrence: CN)
  Receive Date: 20250109
  Receipt Date: 20250109
  Transmission Date: 20250409
  Serious: Yes (Other)
  Sender: NOVARTIS
  Company Number: CN-002147023-NVSC2025CN000806

PATIENT
  Age: 57 Year
  Sex: Female
  Weight: 52.5 kg

DRUGS (4)
  1. RIBOCICLIB [Suspect]
     Active Substance: RIBOCICLIB
     Indication: Neoplasm malignant
     Dosage: 400 MG, QD
     Route: 048
     Dates: start: 20241126, end: 20241217
  2. RIBOCICLIB [Suspect]
     Active Substance: RIBOCICLIB
     Dosage: 400 MG, QD
     Route: 048
     Dates: start: 20241224
  3. HETROMBOPAG OLAMINE [Concomitant]
     Active Substance: HETROMBOPAG OLAMINE
     Indication: Product used for unknown indication
     Dosage: 2.5 MG, QD
     Route: 048
  4. RECOMBINANT HUMAN THROMBOPOIETIN [Concomitant]
     Active Substance: RECOMBINANT HUMAN THROMBOPOIETIN
     Indication: Product used for unknown indication
     Route: 058

REACTIONS (5)
  - Platelet count decreased [Unknown]
  - Myelosuppression [Unknown]
  - White blood cell count decreased [Unknown]
  - Neutrophil count decreased [Unknown]
  - Anaemia [Unknown]

NARRATIVE: CASE EVENT DATE: 20241224
